FAERS Safety Report 4918760-X (Version None)
Quarter: 2006Q1

REPORT INFORMATION
  Report Type: 
  Country: None (occurrence: None)
  Receive Date: 20060222
  Receipt Date: 20060214
  Transmission Date: 20060701
  Serious: Yes (Hospitalization)
  Sender: FDA-Public Use
  Company Number: 2006AP00814

PATIENT
  Age: 20160 Day
  Sex: Male

DRUGS (1)
  1. IRESSA [Suspect]
     Indication: LUNG NEOPLASM MALIGNANT
     Route: 048
     Dates: start: 20051121

REACTIONS (5)
  - INFECTION [None]
  - NASOPHARYNGITIS [None]
  - RASH [None]
  - REFUSAL OF TREATMENT BY PATIENT [None]
  - STOMATITIS [None]
